FAERS Safety Report 9440071 (Version 1)
Quarter: 2013Q3

REPORT INFORMATION
  Report Type: Spontaneous
  Country: US (occurrence: US)
  Receive Date: 20130805
  Receipt Date: 20130805
  Transmission Date: 20140515
  Serious: Yes (Other)
  Sender: FDA-Public Use
  Company Number: US-ASTELLAS-2013US008227

PATIENT
  Sex: Male

DRUGS (1)
  1. XTANDI [Suspect]
     Indication: PRODUCT USED FOR UNKNOWN INDICATION
     Dosage: 4 DF, UID/QD, TWO PILLS IN BREAKFAST AND OTHER TWO ABOUT 3/4 OF THE WAY
     Route: 065
     Dates: start: 201301

REACTIONS (11)
  - Incorrect drug administration duration [Unknown]
  - Fatigue [Unknown]
  - Lung disorder [Unknown]
  - Renal disorder [Unknown]
  - Fluid retention [Unknown]
  - Prostatic specific antigen increased [Unknown]
  - Metastases to bone [Unknown]
  - Musculoskeletal pain [Unknown]
  - Pain [Unknown]
  - Joint swelling [Unknown]
  - Local swelling [Unknown]
